FAERS Safety Report 16428683 (Version 1)
Quarter: 2019Q2

REPORT INFORMATION
  Report Type: Spontaneous
  Country: IT (occurrence: IT)
  Receive Date: 20190613
  Receipt Date: 20190613
  Transmission Date: 20190711
  Serious: Yes (Other)
  Sender: FDA-Public Use
  Company Number: IT-TAKEDA-2019TUS037855

PATIENT
  Age: 49 Year
  Sex: Male

DRUGS (3)
  1. LEVOPRAID                          /01142501/ [Suspect]
     Active Substance: LEVOSULPIRIDE
     Indication: PROPHYLAXIS OF NAUSEA AND VOMITING
     Dosage: 20 GTT DROPS, QD
     Route: 048
     Dates: start: 20160808, end: 20160818
  2. BRINTELLIX [Suspect]
     Active Substance: VORTIOXETINE HYDROBROMIDE
     Indication: DEPRESSION
     Dosage: 15 GTT DROPS, QD
     Route: 048
     Dates: start: 20160801, end: 20161020
  3. XANAX [Concomitant]
     Active Substance: ALPRAZOLAM
     Indication: ANXIETY
     Dosage: 2 MILLIGRAM
     Route: 048

REACTIONS (3)
  - Depression [Recovered/Resolved]
  - Therapeutic product ineffective [Recovered/Resolved]
  - Nausea [Recovered/Resolved]

NARRATIVE: CASE EVENT DATE: 20161020
